FAERS Safety Report 7714639-9 (Version None)
Quarter: 2011Q3

REPORT INFORMATION
  Report Type: 
  Country: None (occurrence: None)
  Receive Date: 20110829
  Receipt Date: 20110819
  Transmission Date: 20111222
  Serious: Yes (Hospitalization)
  Sender: FDA-Public Use
  Company Number: PT-JNJFOC-20110808413

PATIENT
  Age: 44 Year
  Sex: Male
  Weight: 55 kg

DRUGS (2)
  1. STELARA [Suspect]
     Indication: DERMATITIS EXFOLIATIVE
     Route: 058
     Dates: start: 20110811
  2. CORTICOSTEROID [Concomitant]
     Route: 061

REACTIONS (4)
  - SKIN EXFOLIATION [None]
  - OFF LABEL USE [None]
  - PSORIASIS [None]
  - OEDEMA PERIPHERAL [None]
